FAERS Safety Report 9741581 (Version 1)
Quarter: 2013Q4

REPORT INFORMATION
  Report Type: Spontaneous
  Country: US (occurrence: US)
  Receive Date: 20131210
  Receipt Date: 20131210
  Transmission Date: 20140711
  Serious: Yes (Hospitalization)
  Sender: FDA-Public Use
  Company Number: US-BIOGENIDEC-2013BI116428

PATIENT
  Sex: Female

DRUGS (4)
  1. AVONEX [Suspect]
     Indication: MULTIPLE SCLEROSIS
     Route: 030
     Dates: start: 20121129
  2. TOPAMAX [Concomitant]
  3. TRAMADOL HCL [Concomitant]
  4. GABAPENTIN [Concomitant]

REACTIONS (2)
  - Transient ischaemic attack [Unknown]
  - Pulmonary embolism [Unknown]
